FAERS Safety Report 21929268 (Version 2)
Quarter: 2023Q2

REPORT INFORMATION
  Report Type: Report from Study
  Country: BR (occurrence: BR)
  Receive Date: 20230131
  Receipt Date: 20230405
  Transmission Date: 20230721
  Serious: Yes (Hospitalization)
  Sender: FDA-Public Use
  Company Number: BR-BIOGEN-2023BI01183875

PATIENT
  Age: 42 Year
  Sex: Female
  Weight: 68 kg

DRUGS (1)
  1. TYSABRI [Suspect]
     Active Substance: NATALIZUMAB
     Indication: Multiple sclerosis
     Route: 050
     Dates: start: 20230109

REACTIONS (3)
  - Vision blurred [Not Recovered/Not Resolved]
  - Balance disorder [Not Recovered/Not Resolved]
  - Central nervous system lesion [Not Recovered/Not Resolved]

NARRATIVE: CASE EVENT DATE: 20230117
